FAERS Safety Report 24194857 (Version 1)
Quarter: 2024Q3

REPORT INFORMATION
  Report Type: Spontaneous
  Country: IL (occurrence: None)
  Receive Date: 20240809
  Receipt Date: 20240809
  Transmission Date: 20241016
  Serious: Yes (Other)
  Sender: Public
  Company Number: None

PATIENT
  Age: 74 Year
  Sex: Female
  Weight: 60 kg

DRUGS (13)
  1. COSENTYX [Suspect]
     Active Substance: SECUKINUMAB
     Indication: Psoriasis
     Dosage: OTHER QUANTITY : 2 OUNCE(S);?OTHER FREQUENCY : MONTHLY;?
     Route: 030
     Dates: start: 20230727, end: 20231130
  2. ROZLYTREK [Concomitant]
     Active Substance: ENTRECTINIB
  3. URSOFALC [Concomitant]
  4. BEZAFIBRATE [Concomitant]
     Active Substance: BEZAFIBRATE
  5. CIPRALEX [Concomitant]
     Active Substance: ESCITALOPRAM OXALATE
  6. UNSPECIFIED INGREDIENT [Concomitant]
     Active Substance: UNSPECIFIED INGREDIENT
  7. ZOLPIDEM TARTRATE [Concomitant]
     Active Substance: ZOLPIDEM TARTRATE
  8. NAC 600 [Concomitant]
  9. CYANOCOBALAMIN\PYRIDOXINE HYDROCHLORIDE\THIAMINE [Concomitant]
     Active Substance: CYANOCOBALAMIN\PYRIDOXINE HYDROCHLORIDE\THIAMINE
  10. MAGNESIUM [Concomitant]
     Active Substance: MAGNESIUM
  11. IRON [Concomitant]
     Active Substance: IRON
  12. ZINC [Concomitant]
     Active Substance: ZINC
  13. 5-HTP [Concomitant]

REACTIONS (2)
  - ROS1 gene rearrangement [None]
  - Non-small cell lung cancer [None]

NARRATIVE: CASE EVENT DATE: 20231228
